FAERS Safety Report 24412000 (Version 1)
Quarter: 2024Q4

REPORT INFORMATION
  Report Type: Report from Study
  Country: TN (occurrence: TN)
  Receive Date: 20241008
  Receipt Date: 20241008
  Transmission Date: 20250115
  Serious: Yes (Hospitalization)
  Sender: ABBVIE
  Company Number: TN-ABBVIE-5950193

PATIENT
  Age: 40 Year
  Sex: Male

DRUGS (1)
  1. HUMIRA [Suspect]
     Active Substance: ADALIMUMAB
     Indication: Crohn^s disease
     Route: 058

REACTIONS (9)
  - Crohn^s disease [Recovered/Resolved]
  - Enteritis infectious [Recovered/Resolved]
  - Small intestinal stenosis [Recovered/Resolved]
  - Gastrointestinal disorder [Recovered/Resolved]
  - Vitamin D deficiency [Recovering/Resolving]
  - C-reactive protein increased [Recovered/Resolved]
  - Tooth fracture [Not Recovered/Not Resolved]
  - Iron deficiency [Not Recovered/Not Resolved]
  - Vitamin B12 deficiency [Recovering/Resolving]

NARRATIVE: CASE EVENT DATE: 20240901
